FAERS Safety Report 25774780 (Version 1)
Quarter: 2025Q3

REPORT INFORMATION
  Report Type: Spontaneous
  Country: US (occurrence: US)
  Receive Date: 20250908
  Receipt Date: 20250908
  Transmission Date: 20251021
  Serious: Yes (Hospitalization)
  Sender: ANI
  Company Number: US-ANIPHARMA-2025-US-040886

PATIENT
  Age: 90 Year
  Sex: Male

DRUGS (13)
  1. CORTICOTROPIN [Suspect]
     Active Substance: CORTICOTROPIN
     Indication: Gout
     Route: 058
     Dates: start: 20250624
  2. PREDNISONE [Concomitant]
     Active Substance: PREDNISONE
  3. AMLODIPINE BESYLATE [Concomitant]
     Active Substance: AMLODIPINE BESYLATE
  4. TORSEMIDE [Concomitant]
     Active Substance: TORSEMIDE
  5. ALLOPURINOL [Concomitant]
     Active Substance: ALLOPURINOL
  6. ATORVASTATIN CALCIUM [Concomitant]
     Active Substance: ATORVASTATIN CALCIUM
  7. GABAPENTIN [Concomitant]
     Active Substance: GABAPENTIN
  8. COLCHICINE [Concomitant]
     Active Substance: COLCHICINE
  9. ALPRAZOLAM [Concomitant]
     Active Substance: ALPRAZOLAM
  10. ROPINIROLE HYDROCHLORIDE [Concomitant]
     Active Substance: ROPINIROLE HYDROCHLORIDE
  11. TIZANIDINE HYDROCHLORIDE [Concomitant]
     Active Substance: TIZANIDINE HYDROCHLORIDE
  12. GLIPIZIDE [Concomitant]
     Active Substance: GLIPIZIDE
  13. LEVOTHYROXINE SODIUM [Concomitant]
     Active Substance: LEVOTHYROXINE SODIUM

REACTIONS (2)
  - Fall [Unknown]
  - Blood pressure increased [Recovered/Resolved]

NARRATIVE: CASE EVENT DATE: 20250828
